FAERS Safety Report 7291100-X (Version None)
Quarter: 2011Q1

REPORT INFORMATION
  Report Type: 
  Country: None (occurrence: None)
  Receive Date: 20110202
  Receipt Date: 20101207
  Transmission Date: 20110831
  Serious: Yes (Hospitalization, Other)
  Sender: FDA-Public Use
  Company Number: US201012002931

PATIENT
  Age: 73 Year
  Sex: Female
  Weight: 65.9 kg

DRUGS (7)
  1. EFFIENT (PRASUGREL HYDROCHLORIDE) TABLET [Suspect]
     Indication: THROMBOSIS PROPHYLAXIS
     Dosage: 10 MG, DAILY (1/D), ORAL
     Route: 048
     Dates: start: 20100309, end: 20100311
  2. LEVOTHYROXINE SODIUM [Concomitant]
  3. ASPIRIN [Concomitant]
  4. COREG [Concomitant]
  5. ZOCOR [Concomitant]
  6. COZAAR [Concomitant]
  7. FUROSEMIDE [Concomitant]

REACTIONS (2)
  - MELAENA [None]
  - ANAEMIA [None]
